FAERS Safety Report 23034289 (Version 1)
Quarter: 2023Q4

REPORT INFORMATION
  Report Type: Spontaneous
  Country: US (occurrence: None)
  Receive Date: 20231005
  Receipt Date: 20231005
  Transmission Date: 20240110
  Serious: Yes (Hospitalization)
  Sender: FDA-Public Use
  Company Number: None

PATIENT
  Sex: Male

DRUGS (1)
  1. NUBEQA [Suspect]
     Active Substance: DAROLUTAMIDE
     Indication: Neoplasm prostate
     Dosage: FREQUENCY : TWICE A DAY;?
     Route: 048
     Dates: start: 202305

REACTIONS (1)
  - Generalised oedema [None]
